FAERS Safety Report 21949859 (Version 3)
Quarter: 2024Q3

REPORT INFORMATION
  Report Type: Spontaneous
  Country: GB (occurrence: GB)
  Receive Date: 20230203
  Receipt Date: 20240830
  Transmission Date: 20241016
  Serious: No
  Sender: SANOFI AVENTIS
  Company Number: GB-SANOFI-01149314

PATIENT
  Age: 23 Year
  Sex: Female

DRUGS (6)
  1. INSULIN HUMAN [Suspect]
     Active Substance: INSULIN HUMAN
     Indication: Type 1 diabetes mellitus
     Dosage: 72 IU, QD
     Dates: start: 202206
  2. HYDROCORTISONE [Concomitant]
     Active Substance: HYDROCORTISONE\HYDROCORTISONE ACETATE
  3. FLUDROCORTISONE [Concomitant]
     Active Substance: FLUDROCORTISONE
  4. IVABRADINE [Concomitant]
     Active Substance: IVABRADINE
  5. KETOTIFEN [Concomitant]
     Active Substance: KETOTIFEN
  6. SODIUM CHLORIDE [Concomitant]
     Active Substance: SODIUM CHLORIDE
     Indication: Autonomic nervous system imbalance

REACTIONS (1)
  - Wrong technique in product usage process [Unknown]
